FAERS Safety Report 7225488-2 (Version None)
Quarter: 2011Q1

REPORT INFORMATION
  Report Type: 
  Country: None (occurrence: None)
  Receive Date: 20110113
  Receipt Date: 20110110
  Transmission Date: 20110831
  Serious: Yes (Disabling)
  Sender: FDA-Public Use
  Company Number: US-MERCK-1010USA01817

PATIENT
  Age: 77 Year
  Sex: Female
  Weight: 100 kg

DRUGS (12)
  1. ZETIA [Suspect]
     Indication: BLOOD CHOLESTEROL
     Route: 048
     Dates: start: 20100301, end: 20101001
  2. FOSAMAX [Suspect]
     Route: 048
     Dates: end: 20101001
  3. ALLOPURINOL [Concomitant]
     Route: 065
  4. ZOCOR [Concomitant]
     Route: 048
  5. METHYLMETHIONINE SULFONIUM CHLORIDE [Concomitant]
     Route: 065
  6. WARFARIN [Concomitant]
     Route: 065
  7. LISINOPRIL [Concomitant]
     Route: 048
  8. TOPROL-XL [Concomitant]
     Route: 065
  9. VITAMIN E [Concomitant]
     Route: 065
  10. CALCIUM (UNSPECIFIED) [Concomitant]
     Route: 065
  11. WARFARIN [Concomitant]
     Route: 065
  12. TYLENOL-500 [Concomitant]
     Route: 065

REACTIONS (13)
  - ORAL PAIN [None]
  - ABDOMINAL DISCOMFORT [None]
  - EYE IRRITATION [None]
  - GAIT DISTURBANCE [None]
  - VISION BLURRED [None]
  - EYE PRURITUS [None]
  - BACK PAIN [None]
  - EYE PAIN [None]
  - BONE PAIN [None]
  - ABDOMINAL PAIN UPPER [None]
  - ARTHRITIS [None]
  - NAUSEA [None]
  - INSOMNIA [None]
